FAERS Safety Report 6682815-2 (Version None)
Quarter: 2010Q2

REPORT INFORMATION
  Report Type: 
  Country: None (occurrence: None)
  Receive Date: 20100413
  Receipt Date: 20100405
  Transmission Date: 20101027
  Serious: Yes (Hospitalization)
  Sender: FDA-Public Use
  Company Number: 009788

PATIENT
  Sex: Male
  Weight: 130 kg

DRUGS (2)
  1. KEPPRA [Suspect]
     Indication: CONVULSION
     Dosage: 3000 MG ORAL
     Route: 048
     Dates: start: 20050101
  2. CARBATROL [Concomitant]

REACTIONS (2)
  - CONVULSION [None]
  - PNEUMONIA [None]
